FAERS Safety Report 25059602 (Version 1)
Quarter: 2025Q1

REPORT INFORMATION
  Report Type: Spontaneous
  Country: GB (occurrence: GB)
  Receive Date: 20250310
  Receipt Date: 20250310
  Transmission Date: 20250408
  Serious: Yes (Other)
  Sender: MYLAN
  Company Number: GB-MHRA-TPP18863233C7613686YC1741105623749

PATIENT
  Age: 69 Year
  Sex: Male
  Weight: 110 kg

DRUGS (8)
  1. ATORVASTATIN [Suspect]
     Active Substance: ATORVASTATIN
     Indication: Blood cholesterol increased
     Dosage: 80 MILLIGRAM, QD (TAKE ONE TABLET ONCE A DAY TO HELP LOWER CHOLES...)
     Dates: start: 20240805, end: 20250303
  2. Acidex advance [Concomitant]
     Indication: Ill-defined disorder
     Dosage: UNK UNK, QID (TAKE 5ML TO 10ML FOUR TIMES A DAY AFTER MEALS A...)
     Dates: start: 20240124
  3. AMLODIPINE [Concomitant]
     Active Substance: AMLODIPINE BESYLATE
     Indication: Ill-defined disorder
     Dosage: 1 DOSAGE FORM, QD (TAKE ONE TABLET ONCE A DAY)
     Dates: start: 20240124
  4. BENDROFLUMETHIAZIDE [Concomitant]
     Active Substance: BENDROFLUMETHIAZIDE
     Indication: Ill-defined disorder
     Dosage: 1 DOSAGE FORM, QD (ONE TO BE TAKEN DAILY)
     Dates: start: 20240124
  5. DOXAZOSIN [Concomitant]
     Active Substance: DOXAZOSIN MESYLATE
     Indication: Ill-defined disorder
     Dosage: 4 DOSAGE FORM, QD (TAKE FOUR TABLETS ONCE A DAY)
     Dates: start: 20240124
  6. LOSARTAN [Concomitant]
     Active Substance: LOSARTAN
     Indication: Ill-defined disorder
     Dosage: 1 DOSAGE FORM, QD (TAKE ONE DAILY)
     Dates: start: 20240124
  7. OMEPRAZOLE [Concomitant]
     Active Substance: OMEPRAZOLE
     Indication: Ill-defined disorder
     Dosage: 1 DOSAGE FORM, QD (TAKE TWO CAPSULE ONCE A DAY)
     Dates: start: 20240124
  8. ROSUVASTATIN [Concomitant]
     Active Substance: ROSUVASTATIN
     Indication: Blood cholesterol increased
     Dosage: 1 DOSAGE FORM, QD (TAKE ONE TABLET EACH DAY TO HELP LOWER CHOLESTEROL)
     Dates: start: 20250303

REACTIONS (3)
  - Muscle spasms [Unknown]
  - Myalgia [Unknown]
  - Muscle discomfort [Recovered/Resolved]
